FAERS Safety Report 20340954 (Version 1)
Quarter: 2022Q1

REPORT INFORMATION
  Report Type: Spontaneous
  Country: US (occurrence: None)
  Receive Date: 20220117
  Receipt Date: 20220117
  Transmission Date: 20220424
  Serious: Yes (Other)
  Sender: FDA-Public Use
  Company Number: US-Fresenius Kabi-FK202200521

PATIENT
  Age: 55 Year
  Sex: Female

DRUGS (6)
  1. LEUCOVORIN CALCIUM [Suspect]
     Active Substance: LEUCOVORIN CALCIUM
     Indication: Colorectal cancer metastatic
     Dosage: FOLINIC-ACID (L-LEUCOVORIN) 200 MG/M2/2 HOURS?2 CYCLES OF FOLFOX-6 REGIMEN
     Route: 065
     Dates: start: 201207, end: 201209
  2. LEUCOVORIN CALCIUM [Suspect]
     Active Substance: LEUCOVORIN CALCIUM
     Route: 065
     Dates: start: 201212, end: 201303
  3. FLUOROURACIL [Suspect]
     Active Substance: FLUOROURACIL
     Indication: Colorectal cancer metastatic
     Dosage: 2 CYCLES OF FOLFOX-6 REGIMEN
     Route: 042
     Dates: start: 201207, end: 201209
  4. FLUOROURACIL [Suspect]
     Active Substance: FLUOROURACIL
     Route: 065
     Dates: start: 201212, end: 201303
  5. OXALIPLATIN [Suspect]
     Active Substance: OXALIPLATIN
     Indication: Colorectal cancer metastatic
     Dosage: 85 MG/M2/2 HOURS?2 CYCLES OF FOLFOX-6 REGIMEN
     Route: 065
     Dates: start: 201207, end: 201209
  6. OXALIPLATIN [Suspect]
     Active Substance: OXALIPLATIN
     Route: 065
     Dates: start: 201212, end: 201303

REACTIONS (1)
  - Neutropenia [Unknown]
